FAERS Safety Report 21066588 (Version 1)
Quarter: 2022Q3

REPORT INFORMATION
  Report Type: Spontaneous
  Country: DE (occurrence: DE)
  Receive Date: 20220711
  Receipt Date: 20220711
  Transmission Date: 20221027
  Serious: Yes (Life-Threatening)
  Sender: FDA-Public Use
  Company Number: DE-TORRENT-00022722

PATIENT
  Sex: Male

DRUGS (1)
  1. HYDROMORPHONE HYDROCHLORIDE [Suspect]
     Active Substance: HYDROMORPHONE HYDROCHLORIDE
     Indication: Product used for unknown indication
     Dosage: UNKNOWN
     Route: 065
     Dates: start: 20220612, end: 20220616

REACTIONS (7)
  - Condition aggravated [Unknown]
  - Dyspnoea [Unknown]
  - Vomiting [Unknown]
  - Vertigo [Unknown]
  - Hyperventilation [Unknown]
  - Feeding disorder [Unknown]
  - Insomnia [Unknown]

NARRATIVE: CASE EVENT DATE: 20220617
